FAERS Safety Report 5121256-6 (Version None)
Quarter: 2006Q4

REPORT INFORMATION
  Report Type: 
  Country: None (occurrence: None)
  Receive Date: 20061005
  Receipt Date: 20060901
  Transmission Date: 20070319
  Serious: Yes (Hospitalization)
  Sender: FDA-Public Use
  Company Number: US-BOEHRINGER INGELHEIM PHARMACEUTICALS, INC.-2006-BP-10213BP

PATIENT
  Age: 55 Year
  Sex: Female
  Weight: 72.57 kg

DRUGS (11)
  1. SPIRIVA [Suspect]
     Indication: CHRONIC OBSTRUCTIVE PULMONARY DISEASE
     Route: 055
     Dates: start: 20060808, end: 20060828
  2. LISINOPRIL [Concomitant]
  3. K-DUR 10 [Concomitant]
  4. LORTAB [Concomitant]
  5. PLAVIX [Concomitant]
  6. LYRICA [Concomitant]
  7. LIPITOR [Concomitant]
  8. FLOMAX [Concomitant]
  9. MOTRIN [Concomitant]
  10. FLORINEF [Concomitant]
  11. LASIX [Concomitant]

REACTIONS (5)
  - BLOOD GLUCOSE DECREASED [None]
  - FALL [None]
  - PERIORBITAL HAEMATOMA [None]
  - SKIN LACERATION [None]
  - SYNCOPE [None]
